FAERS Safety Report 14118825 (Version 1)
Quarter: 2017Q4

REPORT INFORMATION
  Report Type: Spontaneous
  Country: US (occurrence: US)
  Receive Date: 20171023
  Receipt Date: 20171023
  Transmission Date: 20180321
  Serious: No
  Sender: FDA-Public Use
  Company Number: US-ALLERGAN-1716898US

PATIENT
  Sex: Female

DRUGS (2)
  1. LINZESS [Suspect]
     Active Substance: LINACLOTIDE
     Indication: IRRITABLE BOWEL SYNDROME
     Dosage: 145 ?G, QD
     Route: 048
     Dates: start: 201703
  2. TYLENOL [Concomitant]
     Active Substance: ACETAMINOPHEN
     Indication: SINUS HEADACHE
     Dosage: UNK, PRN
     Route: 065

REACTIONS (2)
  - Memory impairment [Unknown]
  - Malaise [Unknown]
